FAERS Safety Report 18304265 (Version 1)
Quarter: 2020Q3

REPORT INFORMATION
  Report Type: Spontaneous
  Country: AU (occurrence: AU)
  Receive Date: 20200924
  Receipt Date: 20200924
  Transmission Date: 20201103
  Serious: Yes (Death, Hospitalization)
  Sender: FDA-Public Use
  Company Number: AU-VIFOR (INTERNATIONAL) INC.-VIT-2017-10021

PATIENT
  Sex: Male

DRUGS (1)
  1. MIRCERA [Suspect]
     Active Substance: METHOXY POLYETHYLENE GLYCOL-EPOETIN BETA
     Indication: PRODUCT USED FOR UNKNOWN INDICATION
     Route: 065

REACTIONS (4)
  - Malaise [Unknown]
  - Device issue [Fatal]
  - Death [Fatal]
  - Product dose omission issue [Fatal]

NARRATIVE: CASE EVENT DATE: 20170707
